FAERS Safety Report 7576388-X (Version None)
Quarter: 2011Q2

REPORT INFORMATION
  Report Type: 
  Country: None (occurrence: None)
  Receive Date: 20110628
  Receipt Date: 20110613
  Transmission Date: 20111010
  Serious: Yes (Other)
  Sender: FDA-Public Use
  Company Number: US-BAYER-201021023NA

PATIENT
  Age: 26 Year
  Sex: Female
  Weight: 120.18 kg

DRUGS (14)
  1. YAZ [Suspect]
     Indication: CONTRACEPTION
     Dosage: UNK
     Route: 048
     Dates: start: 20080801, end: 20090501
  2. ACETAMINOPHEN [Concomitant]
     Indication: PAIN
     Dosage: 500 MG, Q4HR
     Route: 048
     Dates: start: 20090409
  3. IBUPROFEN [Concomitant]
     Dosage: 200 MG, PRN
     Route: 048
  4. NAPROXEN (ALEVE) [Concomitant]
     Dosage: 4 DF, PRN
     Route: 048
  5. PRILOSEC [Concomitant]
     Route: 048
  6. PROMETHAZINE [Concomitant]
     Indication: NAUSEA
     Dosage: 25 MG, QID
     Route: 048
     Dates: start: 20090409
  7. ACETAMINOPHEN [Concomitant]
     Dosage: 2 DF, PRN
     Route: 048
  8. CLARITHROMYCIN [Concomitant]
  9. PHENERGAN HCL [Concomitant]
  10. CIPROFLOXACIN [Concomitant]
     Indication: URINARY TRACT INFECTION
     Dosage: 500 MG, BID
     Route: 048
     Dates: start: 20090409
  11. YAZ [Suspect]
     Indication: ACNE
  12. HYDROCODONE [Concomitant]
     Indication: PAIN
     Dosage: 5 MG, Q4HR
     Route: 048
     Dates: start: 20090409
  13. PROMETHAZINE [Concomitant]
     Indication: VOMITING
  14. PHENTERMINE [Concomitant]
     Indication: WEIGHT DECREASED

REACTIONS (9)
  - CHOLECYSTITIS ACUTE [None]
  - NAUSEA [None]
  - PAIN [None]
  - ABDOMINAL PAIN [None]
  - CHOLELITHIASIS [None]
  - DISCOMFORT [None]
  - CHOLECYSTITIS CHRONIC [None]
  - GALLBLADDER POLYP [None]
  - ABDOMINAL PAIN UPPER [None]
